FAERS Safety Report 21589581 (Version 2)
Quarter: 2022Q4

REPORT INFORMATION
  Report Type: Spontaneous
  Country: US (occurrence: US)
  Receive Date: 20221114
  Receipt Date: 20221209
  Transmission Date: 20230113
  Serious: Yes (Hospitalization, Other)
  Sender: FDA-Public Use
  Company Number: US-GLAXOSMITHKLINE-US2022AMR163297

PATIENT

DRUGS (1)
  1. NUCALA [Suspect]
     Active Substance: MEPOLIZUMAB
     Indication: Eosinophilic granulomatosis with polyangiitis
     Dosage: UNK
     Dates: start: 20150203

REACTIONS (3)
  - Adrenal insufficiency [Not Recovered/Not Resolved]
  - BRCA1 gene mutation [Unknown]
  - Fallopian tube operation [Recovered/Resolved]

NARRATIVE: CASE EVENT DATE: 20221101
